FAERS Safety Report 11145480 (Version 2)
Quarter: 2016Q3

REPORT INFORMATION
  Report Type: Spontaneous
  Country: JP (occurrence: JP)
  Receive Date: 20150526
  Receipt Date: 20160902
  Transmission Date: 20161109
  Serious: Yes (Death, Other)
  Sender: FDA-Public Use
  Company Number: JP-PFIZER INC-2015172348

PATIENT
  Age: 64 Year
  Sex: Male

DRUGS (7)
  1. TOCILIZUMAB [Concomitant]
     Active Substance: TOCILIZUMAB
     Indication: RHEUMATOID ARTHRITIS
     Dosage: UNK
     Dates: start: 200906
  2. ERYTHROMYCIN. [Suspect]
     Active Substance: ERYTHROMYCIN
     Indication: ANTIBIOTIC THERAPY
     Dosage: 1000 MG, DAILY
     Dates: start: 2011
  3. PAZUFLOXACIN [Suspect]
     Active Substance: PAZUFLOXACIN
     Indication: ANTIBIOTIC THERAPY
     Dosage: 2000 MG, DAILY
     Dates: start: 2011
  4. HEPARIN [Concomitant]
     Active Substance: HEPARIN SODIUM
     Indication: DISSEMINATED INTRAVASCULAR COAGULATION
     Dosage: UNK
     Dates: start: 2011
  5. METHYLPREDNISOLONE SODIUM SUCCINATE. [Suspect]
     Active Substance: METHYLPREDNISOLONE SODIUM SUCCINATE
     Indication: ACUTE RESPIRATORY DISTRESS SYNDROME
     Dosage: 1000 MG, DAILY
     Dates: start: 2011
  6. ANTITHROMBIN III [Concomitant]
     Active Substance: ANTITHROMBIN III HUMAN
     Indication: DISSEMINATED INTRAVASCULAR COAGULATION
     Dosage: UNK
     Dates: start: 2011
  7. SIVELESTAT SODIUM TETRAHYDRATE [Concomitant]
     Indication: ACUTE RESPIRATORY DISTRESS SYNDROME
     Dosage: UNK
     Dates: start: 2011

REACTIONS (4)
  - Staphylococcal sepsis [Unknown]
  - Aneurysm ruptured [Fatal]
  - Subarachnoid haemorrhage [Fatal]
  - Respiratory failure [Unknown]

NARRATIVE: CASE EVENT DATE: 2011
